FAERS Safety Report 6016916-9 (Version None)
Quarter: 2008Q4

REPORT INFORMATION
  Report Type: 
  Country: None (occurrence: None)
  Receive Date: 20081218
  Receipt Date: 20081208
  Transmission Date: 20090506
  Serious: Yes (Other)
  Sender: FDA-Public Use
  Company Number: CHPA2008US22147

PATIENT
  Sex: Female

DRUGS (2)
  1. MAALOX ANTACID (NCH) (ALUMINIUM HYDROXIDE, MAGNESIUM HYDROXIDE) SUSPEN [Suspect]
     Indication: DYSPEPSIA
     Dosage: ORAL
     Route: 048
  2. PREVACID [Concomitant]

REACTIONS (2)
  - BARRETT'S OESOPHAGUS [None]
  - INTENTIONAL DRUG MISUSE [None]
